FAERS Safety Report 12981041 (Version 1)
Quarter: 2016Q4

REPORT INFORMATION
  Report Type: Spontaneous
  Country: US (occurrence: US)
  Receive Date: 20161128
  Receipt Date: 20161128
  Transmission Date: 20170207
  Serious: Yes (Hospitalization)
  Sender: FDA-Public Use
  Company Number: US-BAXTER-2016BAX059351

PATIENT
  Sex: Male

DRUGS (1)
  1. VANCOMYCIN INJECTION, USP [Suspect]
     Active Substance: VANCOMYCIN
     Indication: PRODUCT USED FOR UNKNOWN INDICATION
     Route: 065

REACTIONS (5)
  - Osteomyelitis [Unknown]
  - Renal cancer [Unknown]
  - Parkinson^s disease [Unknown]
  - Neoplasm malignant [Unknown]
  - Multimorbidity [Unknown]
